FAERS Safety Report 21197827 (Version 1)
Quarter: 2022Q3

REPORT INFORMATION
  Report Type: Spontaneous
  Country: US (occurrence: US)
  Receive Date: 20220810
  Receipt Date: 20220810
  Transmission Date: 20221027
  Serious: No
  Sender: FDA-Public Use
  Company Number: US-INCYTE CORPORATION-2022IN007545

PATIENT

DRUGS (2)
  1. JAKAFI [Suspect]
     Active Substance: RUXOLITINIB
     Indication: Thrombocytosis
     Dosage: 10MG IN THE MORNING AND 5MG IN THE EVENING
     Route: 048
     Dates: start: 20181004
  2. JAKAFI [Suspect]
     Active Substance: RUXOLITINIB
     Dosage: 5MG EVERY OTHER DAY
     Route: 048

REACTIONS (2)
  - Anaemia [Unknown]
  - Off label use [Unknown]

NARRATIVE: CASE EVENT DATE: 20181004
